FAERS Safety Report 13879271 (Version 4)
Quarter: 2017Q4

REPORT INFORMATION
  Report Type: Spontaneous
  Country: US (occurrence: US)
  Receive Date: 20170817
  Receipt Date: 20171103
  Transmission Date: 20180320
  Serious: No
  Sender: FDA-Public Use
  Company Number: US-BIOGEN-2017BI00445608

PATIENT
  Age: 62 Year
  Sex: Female

DRUGS (2)
  1. TECFIDERA [Suspect]
     Active Substance: DIMETHYL FUMARATE
     Dosage: INITIAL DOSE
     Route: 065
  2. TECFIDERA [Suspect]
     Active Substance: DIMETHYL FUMARATE
     Indication: MULTIPLE SCLEROSIS
     Route: 065
     Dates: start: 20140516

REACTIONS (6)
  - Chest injury [Recovered/Resolved]
  - Joint swelling [Unknown]
  - Fall [Recovered/Resolved]
  - Pleuritic pain [Recovered/Resolved]
  - Gait disturbance [Unknown]
  - Bone contusion [Unknown]

NARRATIVE: CASE EVENT DATE: 201705
